FAERS Safety Report 4325646-0 (Version None)
Quarter: 2004Q1

REPORT INFORMATION
  Report Type: 
  Country: None (occurrence: None)
  Receive Date: 20040329
  Receipt Date: 20040324
  Transmission Date: 20041129
  Serious: Yes (Hospitalization)
  Sender: FDA-Public Use
  Company Number: IE-BRISTOL-MYERS SQUIBB COMPANY-12540647

PATIENT
  Age: 61 Year
  Sex: Female

DRUGS (3)
  1. LIPOSTAT [Suspect]
     Indication: HYPERCHOLESTEROLAEMIA
     Route: 048
  2. PRESTIM [Concomitant]
  3. LIVIAL [Concomitant]

REACTIONS (5)
  - EXTRAPYRAMIDAL DISORDER [None]
  - FATIGUE [None]
  - HYPOKINESIA [None]
  - MUSCULAR WEAKNESS [None]
  - PARKINSON'S DISEASE [None]
